FAERS Safety Report 18783441 (Version 1)
Quarter: 2021Q1

REPORT INFORMATION
  Report Type: Report from Study
  Country: TH (occurrence: TH)
  Receive Date: 20210125
  Receipt Date: 20210125
  Transmission Date: 20210419
  Serious: Yes (Death, Other)
  Sender: FDA-Public Use
  Company Number: TH-ASTRAZENECA-2021A010647

PATIENT
  Age: 82 Year
  Sex: Female

DRUGS (1)
  1. TAGRISSO [Suspect]
     Active Substance: OSIMERTINIB
     Indication: LUNG NEOPLASM MALIGNANT
     Route: 048
     Dates: start: 20200128, end: 2020

REACTIONS (5)
  - Renal impairment [Fatal]
  - Fatigue [Fatal]
  - Dyspnoea [Fatal]
  - Anuria [Unknown]
  - Pneumonia [Fatal]

NARRATIVE: CASE EVENT DATE: 2020
